FAERS Safety Report 6822398-7 (Version None)
Quarter: 2010Q3

REPORT INFORMATION
  Report Type: 
  Country: None (occurrence: None)
  Receive Date: 20100708
  Receipt Date: 20100628
  Transmission Date: 20110219
  Serious: Yes (Hospitalization, Other)
  Sender: FDA-Public Use
  Company Number: PHHY2010BR42909

PATIENT
  Age: 63 Year
  Sex: Female
  Weight: 80 kg

DRUGS (5)
  1. DIOVAN [Suspect]
     Dosage: 1 TABLET (320 MG) A DAY
     Route: 048
  2. ATENOLOL [Concomitant]
     Indication: HYPERTENSION
     Dosage: 1 TABLET (50 MG) TID
     Route: 048
  3. METFORMIN HCL [Concomitant]
     Indication: DIABETES MELLITUS
     Dosage: 1 TABLET (850 MG), THRICE A DAY
     Route: 048
  4. ASPIRIN [Concomitant]
     Indication: ANTICOAGULANT THERAPY
     Dosage: 2 TABLETS (100 MG)
     Route: 048
  5. MANIDIPINE HYDROCHLORIDE [Concomitant]
     Dosage: 1 TABLET A DAY

REACTIONS (5)
  - CEREBROVASCULAR ACCIDENT [None]
  - CHOKING [None]
  - DYSPHAGIA [None]
  - MEMORY IMPAIRMENT [None]
  - OROPHARYNGEAL DISCOMFORT [None]
